FAERS Safety Report 20050285 (Version 3)
Quarter: 2021Q4

REPORT INFORMATION
  Report Type: Spontaneous
  Country: ES (occurrence: ES)
  Receive Date: 20211109
  Receipt Date: 20211220
  Transmission Date: 20220303
  Serious: Yes (Death, Hospitalization, Other)
  Sender: FDA-Public Use
  Company Number: None

PATIENT
  Age: 51 Year
  Sex: Female
  Weight: 55 kg

DRUGS (7)
  1. RITUXIMAB [Suspect]
     Active Substance: RITUXIMAB
     Indication: Antiphospholipid syndrome
     Dosage: 200 MG/M2, 1X/DAY
     Route: 042
     Dates: start: 20210916, end: 20210916
  2. SOLIRIS [Suspect]
     Active Substance: ECULIZUMAB
     Indication: Atypical haemolytic uraemic syndrome
     Dosage: 900 MG, 1X/DAY
     Route: 042
     Dates: start: 20210922, end: 20210922
  3. SOLIRIS [Suspect]
     Active Substance: ECULIZUMAB
     Dosage: 900 MG, 1X/DAY
     Route: 042
     Dates: start: 20210929, end: 20210929
  4. MYFORTIC [Suspect]
     Active Substance: MYCOPHENOLATE SODIUM
     Indication: Liver transplant
     Dosage: 720MG/12H, FREQ:12 H
     Route: 048
     Dates: start: 20160101, end: 20210909
  5. MYFORTIC [Suspect]
     Active Substance: MYCOPHENOLATE SODIUM
     Indication: Immunosuppression
  6. PREDNISONE [Suspect]
     Active Substance: PREDNISONE
     Indication: Prophylaxis against graft versus host disease
     Dosage: 30MG, FREQ:24 H
     Route: 048
     Dates: start: 20210903, end: 20210909
  7. HEPARIN [Concomitant]
     Active Substance: HEPARIN SODIUM
     Dosage: UNK

REACTIONS (5)
  - Disseminated cryptococcosis [Fatal]
  - Multiple organ dysfunction syndrome [Fatal]
  - Cryptococcosis [Fatal]
  - Vascular device infection [Fatal]
  - Off label use [Unknown]

NARRATIVE: CASE EVENT DATE: 20210916
